FAERS Safety Report 8563571-X (Version None)
Quarter: 2012Q3

REPORT INFORMATION
  Report Type: 
  Country: None (occurrence: None)
  Receive Date: 20120803
  Receipt Date: 20120723
  Transmission Date: 20120928
  Serious: Yes (Other)
  Sender: FDA-Public Use
  Company Number: NL-AMGEN-NLDSP2012047279

PATIENT
  Sex: Male

DRUGS (1)
  1. ENBREL [Suspect]
     Indication: PSORIASIS
     Dosage: 50 MG, 2X/WEEK
     Dates: start: 20060101

REACTIONS (3)
  - PSYCHOTIC DISORDER [None]
  - BIPOLAR DISORDER [None]
  - AGORAPHOBIA [None]
